FAERS Safety Report 7211484-8 (Version None)
Quarter: 2011Q1

REPORT INFORMATION
  Report Type: 
  Country: None (occurrence: None)
  Receive Date: 20110105
  Receipt Date: 20101227
  Transmission Date: 20110831
  Serious: Yes (Other)
  Sender: FDA-Public Use
  Company Number: US-ELI_LILLY_AND_COMPANY-US201007007810

PATIENT
  Sex: Female

DRUGS (4)
  1. HUMALOG [Suspect]
     Dosage: 2 U, OTHER
  2. HUMALOG [Suspect]
     Dosage: UNK, 3/D
     Dates: start: 19960614
  3. LANTUS [Concomitant]
  4. HUMALOG [Suspect]
     Indication: TYPE 1 DIABETES MELLITUS
     Dosage: UNK, 3/D
     Dates: start: 19960614

REACTIONS (2)
  - FEELING COLD [None]
  - HYPOGLYCAEMIC UNCONSCIOUSNESS [None]
